FAERS Safety Report 24598413 (Version 3)
Quarter: 2025Q1

REPORT INFORMATION
  Report Type: Spontaneous
  Country: US (occurrence: US)
  Receive Date: 20241110
  Receipt Date: 20250315
  Transmission Date: 20250409
  Serious: No
  Sender: SANOFI AVENTIS
  Company Number: US-SA-2024SA310856

PATIENT
  Age: 54 Year
  Sex: Female

DRUGS (1)
  1. DUPIXENT [Suspect]
     Active Substance: DUPILUMAB
     Indication: Nasal polyps
     Dosage: 300 MG, QOW
     Route: 058
     Dates: start: 20240630

REACTIONS (8)
  - Nasal congestion [Unknown]
  - Pain [Unknown]
  - Sinus congestion [Unknown]
  - Anosmia [Unknown]
  - Nasopharyngitis [Unknown]
  - Nasal polyps [Unknown]
  - Condition aggravated [Unknown]
  - Injection site pain [Unknown]

NARRATIVE: CASE EVENT DATE: 20241001
